FAERS Safety Report 24917984 (Version 1)
Quarter: 2025Q1

REPORT INFORMATION
  Report Type: Spontaneous
  Country: US (occurrence: US)
  Receive Date: 20250203
  Receipt Date: 20250203
  Transmission Date: 20250409
  Serious: Yes (Other)
  Sender: PFIZER
  Company Number: US-PFIZER INC-202500021277

PATIENT
  Age: 22 Year

DRUGS (4)
  1. VISTARIL [Suspect]
     Active Substance: HYDROXYZINE PAMOATE
     Dosage: 50 MG, 1X/DAY
     Route: 048
     Dates: start: 20240314
  2. CORTEF [Suspect]
     Active Substance: HYDROCORTISONE
     Dosage: 10 MG, 2X/DAY
     Route: 048
     Dates: start: 20241108
  3. ZOLOFT [Suspect]
     Active Substance: SERTRALINE HYDROCHLORIDE
     Dates: start: 20240513
  4. ZOLOFT [Suspect]
     Active Substance: SERTRALINE HYDROCHLORIDE
     Dosage: 25 MG, DAILY (1 TABLET EVERY MORNING)
     Route: 048
     Dates: start: 20240711

REACTIONS (13)
  - Hypothyroidism [Unknown]
  - Growth hormone deficiency [Unknown]
  - Hypopituitarism [Unknown]
  - Decreased appetite [Unknown]
  - Blood creatinine increased [Unknown]
  - Blood calcium increased [Unknown]
  - Blood albumin increased [Unknown]
  - Non-high-density lipoprotein cholesterol increased [Unknown]
  - Insulin-like growth factor decreased [Unknown]
  - Insulin-like growth factor decreased [Unknown]
  - Bone density decreased [Unknown]
  - Blood testosterone free increased [Unknown]
  - Blood testosterone increased [Unknown]

NARRATIVE: CASE EVENT DATE: 20241104
